FAERS Safety Report 9690474 (Version 1)
Quarter: 2013Q4

REPORT INFORMATION
  Report Type: Spontaneous
  Country: AT (occurrence: AT)
  Receive Date: 20131115
  Receipt Date: 20131115
  Transmission Date: 20140711
  Serious: Yes (Other)
  Sender: FDA-Public Use
  Company Number: AT-UCBSA-102984

PATIENT
  Sex: Female

DRUGS (1)
  1. VIMPAT [Suspect]
     Indication: STATUS EPILEPTICUS
     Dosage: DOSE: 200 MG
     Route: 042

REACTIONS (2)
  - Bradycardia [Unknown]
  - Hypotension [Unknown]
